FAERS Safety Report 6498834-5 (Version None)
Quarter: 2009Q4

REPORT INFORMATION
  Report Type: 
  Country: None (occurrence: None)
  Receive Date: 20091127
  Receipt Date: 20081010
  Transmission Date: 20100525
  Serious: No
  Sender: FDA-Public Use
  Company Number: 280482

PATIENT
  Age: 77 Year
  Sex: Male

DRUGS (2)
  1. NOVOLOG [Suspect]
     Indication: INSULIN-REQUIRING TYPE 2 DIABETES MELLITUS
     Dosage: SUBCUTANEOUS
     Route: 058
  2. LANTUS (INSULIN GLARGINE) SUSPENSION FOR INJECTION [Concomitant]

REACTIONS (2)
  - INJECTION SITE HAEMATOMA [None]
  - PAIN IN EXTREMITY [None]
